FAERS Safety Report 12082879 (Version 2)
Quarter: 2016Q1

REPORT INFORMATION
  Report Type: Report from Study
  Country: NL (occurrence: NL)
  Receive Date: 20160217
  Receipt Date: 20160224
  Transmission Date: 20160526
  Serious: Yes (Death, Hospitalization, Other)
  Sender: FDA-Public Use
  Company Number: PHHY2016NL020409

PATIENT
  Age: 75 Year
  Sex: Male

DRUGS (5)
  1. ZOMETA [Suspect]
     Active Substance: ZOLEDRONIC ACID
     Indication: PROSTATE CANCER METASTATIC
  2. CASODEX [Concomitant]
     Active Substance: BICALUTAMIDE
     Indication: PRODUCT USED FOR UNKNOWN INDICATION
     Dosage: UNK
     Route: 065
     Dates: end: 2014
  3. ENZALUTAMIDE [Concomitant]
     Active Substance: ENZALUTAMIDE
     Indication: PRODUCT USED FOR UNKNOWN INDICATION
     Dosage: UNK
     Route: 065
     Dates: end: 201601
  4. ZOMETA [Suspect]
     Active Substance: ZOLEDRONIC ACID
     Indication: HORMONE-DEPENDENT PROSTATE CANCER
     Dosage: 4 MG/100ML QMO (ONCE EVERY 4 WEEKS)
     Route: 042
     Dates: start: 201210
  5. TAXOTERE [Concomitant]
     Active Substance: DOCETAXEL
     Indication: PRODUCT USED FOR UNKNOWN INDICATION
     Dosage: UNK
     Route: 065
     Dates: end: 2014

REACTIONS (24)
  - Intestinal dilatation [Unknown]
  - Metastases to pelvis [Unknown]
  - Metastases to peritoneum [Unknown]
  - Respiratory rate increased [Unknown]
  - Constipation [Unknown]
  - Hydronephrosis [Unknown]
  - Metastases to liver [Unknown]
  - Pallor [Unknown]
  - Abdominal distension [Unknown]
  - Pupillary light reflex tests abnormal [Unknown]
  - Breath sounds abnormal [Unknown]
  - Malignant neoplasm progression [Unknown]
  - Heart rate increased [Unknown]
  - Body temperature increased [Unknown]
  - Death [Fatal]
  - Tongue dry [Unknown]
  - Pelvic mass [Unknown]
  - Blood pressure increased [Unknown]
  - Intestinal obstruction [Unknown]
  - Vomiting [Unknown]
  - Abdominal pain [Unknown]
  - Prostate cancer metastatic [Unknown]
  - Cardiac murmur [Unknown]
  - Ileus [Unknown]

NARRATIVE: CASE EVENT DATE: 2014
